FAERS Safety Report 18561027 (Version 2)
Quarter: 2022Q2

REPORT INFORMATION
  Report Type: Spontaneous
  Country: US (occurrence: US)
  Receive Date: 20201130
  Receipt Date: 20220418
  Transmission Date: 20220720
  Serious: No
  Sender: FDA-Public Use
  Company Number: US-PFIZER INC-2020464831

PATIENT
  Age: 79 Year
  Sex: Female

DRUGS (1)
  1. IBRANCE [Suspect]
     Active Substance: PALBOCICLIB
     Indication: Breast cancer metastatic
     Dosage: 100 MG, CYCLIC, (1 CAPSULE BY MOUTH ONCE A DAY ON DAYS 1 TO 21 OF EACH 28 DAY CYCLE)
     Route: 048

REACTIONS (1)
  - Neoplasm progression [Unknown]
